FAERS Safety Report 4421611-3 (Version None)
Quarter: 2004Q3

REPORT INFORMATION
  Report Type: 
  Country: None (occurrence: None)
  Receive Date: 20040805
  Receipt Date: 20030627
  Transmission Date: 20050211
  Serious: Yes (Hospitalization)
  Sender: FDA-Public Use
  Company Number: JP-JNJFOC-20040506447

PATIENT
  Age: 60 Year
  Sex: Female

DRUGS (7)
  1. PEPCID AC [Suspect]
     Indication: ABDOMINAL PAIN UPPER
     Dosage: 10 MG , ORAL
     Route: 048
     Dates: start: 20021101
  2. FERROMIA (FERROUS CITRATE) [Concomitant]
  3. RHUBARB (RHUBARB DRY EXTRACT) [Concomitant]
  4. HALCION [Concomitant]
  5. CEFZON (CEFDINIR) [Concomitant]
  6. FURSENNID (SNNOSIDE A) [Concomitant]
  7. DEXAMETHASONE [Concomitant]

REACTIONS (6)
  - DYSPNOEA EXERTIONAL [None]
  - GASTRITIS ATROPHIC [None]
  - NORMOCHROMIC NORMOCYTIC ANAEMIA [None]
  - ORTHOSTATIC HYPOTENSION [None]
  - PLATELET COUNT DECREASED [None]
  - SELF-MEDICATION [None]
